FAERS Safety Report 23766745 (Version 1)
Quarter: 2024Q2

REPORT INFORMATION
  Report Type: Spontaneous
  Country: US (occurrence: US)
  Receive Date: 20240422
  Receipt Date: 20240422
  Transmission Date: 20240716
  Serious: Yes (Hospitalization, Other)
  Sender: FDA-Public Use
  Company Number: US-BEH-2024170732

PATIENT
  Age: 77 Year
  Sex: Female

DRUGS (1)
  1. HIZENTRA [Suspect]
     Active Substance: HUMAN IMMUNOGLOBULIN G
     Indication: Selective IgG subclass deficiency
     Dosage: 18 G, QOW
     Route: 058
     Dates: start: 201610

REACTIONS (4)
  - Haematological infection [Unknown]
  - Nephrolithiasis [Unknown]
  - Haematological infection [Unknown]
  - Nephrolithiasis [Unknown]
